FAERS Safety Report 9058929 (Version 1)
Quarter: 2013Q1

REPORT INFORMATION
  Report Type: Spontaneous
  Country: US (occurrence: US)
  Receive Date: 20130211
  Receipt Date: 20130211
  Transmission Date: 20140127
  Serious: No
  Sender: FDA-Public Use
  Company Number: US-BRISTOL-MYERS SQUIBB COMPANY-16382996

PATIENT
  Age: 64 Year
  Sex: Male

DRUGS (2)
  1. GLUCOPHAGE [Suspect]
     Indication: TYPE 2 DIABETES MELLITUS
  2. GLUCOTROL [Suspect]
     Indication: TYPE 2 DIABETES MELLITUS

REACTIONS (1)
  - Blood glucose abnormal [Unknown]
